FAERS Safety Report 8006107-4 (Version None)
Quarter: 2011Q4

REPORT INFORMATION
  Report Type: 
  Country: None (occurrence: None)
  Receive Date: 20111226
  Receipt Date: 20111214
  Transmission Date: 20120403
  Serious: Yes (Disabling)
  Sender: FDA-Public Use
  Company Number: GB-RANBAXY-2011R1-51194

PATIENT

DRUGS (14)
  1. ALLOPURINOL [Concomitant]
     Dosage: UNK
     Route: 065
     Dates: start: 20111008, end: 20111105
  2. ATENOLOL [Concomitant]
     Dosage: UNK
     Route: 065
     Dates: start: 20111008, end: 20111105
  3. ATORVASTATIN [Concomitant]
     Indication: PRODUCT USED FOR UNKNOWN INDICATION
     Dosage: UNK
     Route: 065
     Dates: start: 20110813, end: 20110910
  4. CANDESARTAN CILEXETIL [Concomitant]
     Indication: PRODUCT USED FOR UNKNOWN INDICATION
     Dosage: UNK
     Route: 065
     Dates: start: 20110813, end: 20110910
  5. ATENOLOL [Concomitant]
     Indication: PRODUCT USED FOR UNKNOWN INDICATION
     Dosage: UNK
     Route: 065
     Dates: start: 20110813, end: 20110910
  6. ATORVASTATIN [Concomitant]
     Dosage: UNK
     Route: 065
     Dates: start: 20111008, end: 20111105
  7. FUROSEMIDE [Concomitant]
     Indication: PRODUCT USED FOR UNKNOWN INDICATION
     Dosage: UNK
     Route: 065
     Dates: start: 20110813, end: 20110910
  8. CANDESARTAN CILEXETIL [Concomitant]
     Dosage: UNK
     Route: 065
     Dates: start: 20111008, end: 20111105
  9. NICORANDIL [Concomitant]
     Dosage: UNK
     Route: 065
     Dates: start: 20111008, end: 20111105
  10. CINCHOCAINE [Concomitant]
     Indication: PRODUCT USED FOR UNKNOWN INDICATION
     Dosage: UNK
     Route: 065
     Dates: start: 20110826, end: 20111101
  11. FUROSEMIDE [Concomitant]
     Dosage: UNK
     Route: 065
     Dates: start: 20111008, end: 20111105
  12. NICORANDIL [Concomitant]
     Indication: PRODUCT USED FOR UNKNOWN INDICATION
     Dosage: UNK
     Route: 065
     Dates: start: 20110813, end: 20110910
  13. ALLOPURINOL [Concomitant]
     Indication: PRODUCT USED FOR UNKNOWN INDICATION
     Dosage: UNK
     Route: 065
     Dates: start: 20110813, end: 20110910
  14. NAPROXEN [Suspect]
     Indication: INTERMITTENT CLAUDICATION
     Dosage: UNK
     Route: 065

REACTIONS (1)
  - MYALGIA [None]
